FAERS Safety Report 22959912 (Version 4)
Quarter: 2023Q4

REPORT INFORMATION
  Report Type: Report from Study
  Country: US (occurrence: US)
  Receive Date: 20230920
  Receipt Date: 20231020
  Transmission Date: 20240110
  Serious: No
  Sender: FDA-Public Use
  Company Number: US-002147023-NVSC2023US200729

PATIENT
  Sex: Female
  Weight: 92.53 kg

DRUGS (7)
  1. COSENTYX [Suspect]
     Active Substance: SECUKINUMAB
     Indication: Product used for unknown indication
     Dosage: 300 MG, QMO
     Route: 058
  2. TACROLIMUS [Suspect]
     Active Substance: TACROLIMUS
     Indication: Rosacea
     Dosage: UNK
     Route: 065
  3. TACROLIMUS [Suspect]
     Active Substance: TACROLIMUS
     Indication: Seborrhoeic dermatitis
  4. DOXYCYCLINE [Suspect]
     Active Substance: DOXYCYCLINE
     Indication: Rosacea
     Dosage: UNK
     Route: 065
  5. DOXYCYCLINE [Suspect]
     Active Substance: DOXYCYCLINE
     Indication: Seborrhoeic dermatitis
  6. FLUOCINONIDE [Suspect]
     Active Substance: FLUOCINONIDE
     Indication: Rosacea
     Dosage: UNK
     Route: 065
  7. FLUOCINONIDE [Suspect]
     Active Substance: FLUOCINONIDE
     Indication: Seborrhoeic dermatitis

REACTIONS (8)
  - Rosacea [Unknown]
  - Psoriasis [Unknown]
  - Skin exfoliation [Unknown]
  - Papule [Unknown]
  - Erythema [Unknown]
  - Pustule [Unknown]
  - Rash [Unknown]
  - Therapeutic product effect incomplete [Unknown]
